FAERS Safety Report 4386395-6 (Version None)
Quarter: 2004Q2

REPORT INFORMATION
  Report Type: 
  Country: None (occurrence: None)
  Receive Date: 20040629
  Receipt Date: 20040617
  Transmission Date: 20050107
  Serious: Yes (Hospitalization, Other)
  Sender: FDA-Public Use
  Company Number: 200412079JP

PATIENT
  Age: 53 Year
  Sex: Female

DRUGS (1)
  1. ARAVA [Suspect]
     Dosage: DOSE: UNK
     Route: 048

REACTIONS (4)
  - LEUKOPENIA [None]
  - LIVER DISORDER [None]
  - PYREXIA [None]
  - SPEECH DISORDER [None]
